FAERS Safety Report 21064861 (Version 1)
Quarter: 2022Q3

REPORT INFORMATION
  Report Type: Spontaneous
  Country: CN (occurrence: CN)
  Receive Date: 20220711
  Receipt Date: 20220711
  Transmission Date: 20221026
  Serious: Yes (Other)
  Sender: FDA-Public Use
  Company Number: CN-OTSUKA-2022_035347

PATIENT
  Age: 30 Year
  Sex: Female

DRUGS (12)
  1. BUSULFAN [Suspect]
     Active Substance: BUSULFAN
     Indication: Aplastic anaemia
     Dosage: 0.8 MG/KG, EVERY 6 HOURS FOR 4 DAYS
     Route: 065
  2. BUSULFAN [Suspect]
     Active Substance: BUSULFAN
     Indication: Stem cell transplant
  3. BUSULFAN [Suspect]
     Active Substance: BUSULFAN
     Indication: Bone marrow conditioning regimen
  4. CYCLOPHOSPHAMIDE [Suspect]
     Active Substance: CYCLOPHOSPHAMIDE
     Indication: Aplastic anaemia
     Dosage: 1.8 G/M2, FOR 2 DAYS
     Route: 065
  5. CYCLOPHOSPHAMIDE [Suspect]
     Active Substance: CYCLOPHOSPHAMIDE
     Indication: Stem cell transplant
  6. CYCLOPHOSPHAMIDE [Suspect]
     Active Substance: CYCLOPHOSPHAMIDE
     Indication: Bone marrow conditioning regimen
  7. CYTARABINE [Suspect]
     Active Substance: CYTARABINE
     Indication: Aplastic anaemia
     Dosage: 2 G/M2, EVERY 12 HOURS FOR 2 DAYS
     Route: 065
  8. CYTARABINE [Suspect]
     Active Substance: CYTARABINE
     Indication: Stem cell transplant
  9. CYTARABINE [Suspect]
     Active Substance: CYTARABINE
     Indication: Bone marrow conditioning regimen
  10. SEMUSTINE [Suspect]
     Active Substance: SEMUSTINE
     Indication: Aplastic anaemia
     Dosage: 0.2 G/M2, FOR ONE DAY
     Route: 065
  11. SEMUSTINE [Suspect]
     Active Substance: SEMUSTINE
     Indication: Stem cell transplant
  12. SEMUSTINE [Suspect]
     Active Substance: SEMUSTINE
     Indication: Bone marrow conditioning regimen

REACTIONS (4)
  - Cytomegalovirus syndrome [Unknown]
  - Haemorrhage [Unknown]
  - Thrombocytopenia [Unknown]
  - Product use in unapproved indication [Unknown]
